FAERS Safety Report 7858128-X (Version None)
Quarter: 2011Q4

REPORT INFORMATION
  Report Type: 
  Country: None (occurrence: None)
  Receive Date: 20111027
  Receipt Date: 20111012
  Transmission Date: 20120403
  Serious: Yes (Hospitalization, Other)
  Sender: FDA-Public Use
  Company Number: US-BAYER-2011-026854

PATIENT
  Age: 18 Year
  Sex: Female
  Weight: 45.351 kg

DRUGS (12)
  1. YASMIN [Suspect]
     Indication: ORAL CONTRACEPTION
     Dosage: UNK
     Dates: start: 20040801, end: 20050701
  2. YAZ [Suspect]
  3. DROSPIRENONE AND ETHINYL ESTRADIOL [Suspect]
     Indication: ORAL CONTRACEPTION
     Dosage: UNK
     Dates: start: 20080801, end: 20090601
  4. CIPROFLOXACIN HCL [Concomitant]
     Dosage: 500 MG, UNK
  5. DICYCLOMINE [Concomitant]
     Dosage: 10 MG, UNK
  6. YASMIN [Suspect]
     Indication: PREMENSTRUAL SYNDROME
  7. YAZ [Suspect]
     Indication: ORAL CONTRACEPTION
     Dosage: UNK
     Dates: start: 20070801, end: 20071101
  8. YASMIN [Suspect]
  9. TRAMADOL HCL [Concomitant]
     Dosage: 50 MG, UNK
  10. DROSPIRENONE AND ETHINYL ESTRADIOL [Suspect]
     Indication: PREMENSTRUAL SYNDROME
  11. YAZ [Suspect]
     Indication: PREMENSTRUAL SYNDROME
  12. DROSPIRENONE AND ETHINYL ESTRADIOL [Suspect]

REACTIONS (6)
  - GALLBLADDER DISORDER [None]
  - CHOLECYSTITIS CHRONIC [None]
  - PAIN [None]
  - DEPRESSION [None]
  - EMOTIONAL DISTRESS [None]
  - MENTAL DISORDER [None]
